FAERS Safety Report 17797051 (Version 4)
Quarter: 2020Q3

REPORT INFORMATION
  Report Type: Report from Study
  Country: CA (occurrence: CA)
  Receive Date: 20200518
  Receipt Date: 20200731
  Transmission Date: 20201102
  Serious: Yes (Hospitalization, Other)
  Sender: FDA-Public Use
  Company Number: CA-BRISTOL-MYERS SQUIBB COMPANY-BMS-2020-005821

PATIENT
  Age: 87 Year
  Sex: Male

DRUGS (2)
  1. ABATACEPT [Suspect]
     Active Substance: ABATACEPT
     Indication: RHEUMATOID ARTHRITIS
     Dosage: 125 MILLIGRAM, QWK
     Route: 058
     Dates: start: 20200115
  2. ZOSTRIX [AZITHROMYCIN] [Concomitant]
     Indication: PRODUCT USED FOR UNKNOWN INDICATION
     Route: 065

REACTIONS (8)
  - Product dose omission issue [Unknown]
  - Constipation [Unknown]
  - Dizziness [Unknown]
  - Arthropathy [Unknown]
  - Arthritis [Unknown]
  - Urinary tract infection [Unknown]
  - Abdominal pain [Unknown]
  - Urinary retention [Unknown]

NARRATIVE: CASE EVENT DATE: 20200504
